FAERS Safety Report 13358783 (Version 1)
Quarter: 2017Q1

REPORT INFORMATION
  Report Type: Spontaneous
  Country: US (occurrence: US)
  Receive Date: 20170322
  Receipt Date: 20170322
  Transmission Date: 20170429
  Serious: Yes (Death)
  Sender: FDA-Public Use
  Company Number: US-OTSUKA-2017_006476

PATIENT
  Sex: Female

DRUGS (2)
  1. SAMSCA [Suspect]
     Active Substance: TOLVAPTAN
     Indication: HYPEROSMOLAR STATE
     Dosage: 15 MG, TIW
     Route: 048
     Dates: start: 20161216, end: 20170101
  2. SAMSCA [Suspect]
     Active Substance: TOLVAPTAN
     Indication: HYPERNATRAEMIA

REACTIONS (3)
  - Death [Fatal]
  - Off label use [Unknown]
  - Inappropriate schedule of drug administration [Unknown]

NARRATIVE: CASE EVENT DATE: 20161216
